FAERS Safety Report 5480366-4 (Version None)
Quarter: 2007Q4

REPORT INFORMATION
  Report Type: 
  Country: None (occurrence: None)
  Receive Date: 20071009
  Receipt Date: 20070928
  Transmission Date: 20080405
  Serious: Yes (Life-Threatening)
  Sender: FDA-Public Use
  Company Number: DE-ROCHE-513585

PATIENT
  Age: 73 Year
  Sex: Female
  Weight: 65 kg

DRUGS (2)
  1. BONIVA [Suspect]
     Indication: OSTEOPOROSIS
     Route: 042
     Dates: start: 20070802
  2. BISPHOSPHONATES [Suspect]
     Route: 048

REACTIONS (5)
  - ANGIOEDEMA [None]
  - DYSPNOEA [None]
  - NAUSEA [None]
  - PRURITUS [None]
  - VOMITING [None]
